FAERS Safety Report 21074925 (Version 1)
Quarter: 2022Q3

REPORT INFORMATION
  Report Type: Spontaneous
  Country: US (occurrence: None)
  Receive Date: 20220712
  Receipt Date: 20220712
  Transmission Date: 20221027
  Serious: No
  Sender: FDA-Public Use
  Company Number: None

PATIENT
  Age: 82 Year
  Sex: Male
  Weight: 63.96 kg

DRUGS (38)
  1. IRINOTECAN [Suspect]
     Active Substance: IRINOTECAN
     Indication: Colon cancer
     Dosage: OTHER FREQUENCY : Q2WKS;?
     Route: 042
  2. ALOXI [Concomitant]
     Active Substance: PALONOSETRON HYDROCHLORIDE
  3. ASMANEX [Concomitant]
     Active Substance: MOMETASONE FUROATE
  4. CAMPTOSAR [Concomitant]
     Active Substance: IRINOTECAN HYDROCHLORIDE
  5. CARAFATE [Concomitant]
     Active Substance: SUCRALFATE
  6. CHOLESTYRAMINE [Concomitant]
     Active Substance: CHOLESTYRAMINE
  7. DIALYVITE [Concomitant]
     Active Substance: ASCORBIC ACID\BIOTIN\CALCIUM PANTOTHENATE\COBALAMIN\FOLIC ACID\NIACINAMIDE\PYRIDOXINE HYDROCHLORIDE\
  8. DICYCLOMINE [Concomitant]
     Active Substance: DICYCLOMINE HYDROCHLORIDE
  9. FERRIC POLYSACCHARIDE COMPLEX [Concomitant]
     Active Substance: FERRIC POLYSACCHARIDE COMPLEX
  10. FERROUS SULFATE [Concomitant]
     Active Substance: FERROUS SULFATE
  11. INJECTAFER [Concomitant]
     Active Substance: FERRIC CARBOXYMALTOSE
  12. KLOR-CON [Concomitant]
     Active Substance: POTASSIUM CHLORIDE
  13. LEVSIN [Concomitant]
     Active Substance: HYOSCYAMINE SULFATE
  14. LOMOTIL [Concomitant]
     Active Substance: ATROPINE SULFATE\DIPHENOXYLATE HYDROCHLORIDE
  15. LONSURF [Concomitant]
     Active Substance: TIPIRACIL HYDROCHLORIDE\TRIFLURIDINE
  16. LOPERAMIDE [Concomitant]
     Active Substance: LOPERAMIDE
  17. MEDROL [Concomitant]
     Active Substance: METHYLPREDNISOLONE
  18. MELOXICAM [Concomitant]
     Active Substance: MELOXICAM
  19. METHOCARBAMOL [Concomitant]
     Active Substance: METHOCARBAMOL
  20. MS CONTIN [Concomitant]
     Active Substance: MORPHINE SULFATE
  21. NAPROXEN [Concomitant]
     Active Substance: NAPROXEN
  22. NYSTATIN [Concomitant]
     Active Substance: NYSTATIN
  23. OMEPRAZOLE [Concomitant]
     Active Substance: OMEPRAZOLE
  24. OXYCODONE [Concomitant]
     Active Substance: OXYCODONE
  25. PANTOPRAZOLE [Concomitant]
     Active Substance: PANTOPRAZOLE
  26. PERCOCET [Concomitant]
     Active Substance: ACETAMINOPHEN\OXYCODONE HYDROCHLORIDE
  27. PREDNISONE [Concomitant]
     Active Substance: PREDNISONE
  28. PROAIR HFA [Concomitant]
     Active Substance: ALBUTEROL SULFATE
  29. PROCHLORPERAZINE [Concomitant]
     Active Substance: PROCHLORPERAZINE
  30. PROTONIX [Concomitant]
     Active Substance: PANTOPRAZOLE SODIUM
  31. SYMBICORT [Concomitant]
     Active Substance: BUDESONIDE\FORMOTEROL FUMARATE DIHYDRATE
  32. TAMSULOSIN [Concomitant]
     Active Substance: TAMSULOSIN
  33. VENOFER [Concomitant]
     Active Substance: IRON SUCROSE
  34. VITAMIN B12 [Concomitant]
     Active Substance: CYANOCOBALAMIN
  35. VITAMIN B12 [Concomitant]
     Active Substance: CYANOCOBALAMIN
  36. VITAMIN D [Concomitant]
     Active Substance: VITAMIN D NOS
  37. ZOLEDRONIC [Concomitant]
     Active Substance: ZOLEDRONIC ACID
  38. ZYRTEC [Concomitant]
     Active Substance: CETIRIZINE HYDROCHLORIDE

REACTIONS (1)
  - Disease progression [None]
